FAERS Safety Report 23917474 (Version 5)
Quarter: 2024Q2

REPORT INFORMATION
  Report Type: Report from Study
  Country: ES (occurrence: ES)
  Receive Date: 20240529
  Receipt Date: 20240613
  Transmission Date: 20240717
  Serious: Yes (Hospitalization, Other)
  Sender: FDA-Public Use
  Company Number: ES-ABBVIE-5779276

PATIENT
  Sex: Female

DRUGS (5)
  1. CARBIDOPA\LEVODOPA [Suspect]
     Active Substance: CARBIDOPA\LEVODOPA
     Indication: Parkinson^s disease
     Dosage: LAST ADMIN DATE: MAY 2024
     Route: 050
     Dates: start: 20240521
  2. CARBIDOPA\LEVODOPA [Suspect]
     Active Substance: CARBIDOPA\LEVODOPA
     Dosage: DECREASING DOSES, MORNING DOSE 13.5 AND CONTINUOUS DOSE 4.3.?FIRST ADMIN DATE- MAY 2024
     Route: 050
     Dates: start: 202405, end: 20240531
  3. CARBIDOPA\LEVODOPA [Suspect]
     Active Substance: CARBIDOPA\LEVODOPA
     Dosage: DOSE ADJUSTMENT
     Route: 050
     Dates: start: 202405, end: 202405
  4. CARBIDOPA\LEVODOPA [Suspect]
     Active Substance: CARBIDOPA\LEVODOPA
     Dosage: DOSE REDUCTION
     Route: 050
     Dates: start: 20240531, end: 20240607
  5. CARBIDOPA\LEVODOPA [Suspect]
     Active Substance: CARBIDOPA\LEVODOPA
     Dosage: INCREASED THE MORNING DOSE SLIGHTLY
     Route: 050
     Dates: start: 20240607

REACTIONS (9)
  - Flank pain [Unknown]
  - Dyskinesia [Not Recovered/Not Resolved]
  - Abdominal distension [Unknown]
  - Somnolence [Unknown]
  - Faecal volume increased [Unknown]
  - Abdominal pain [Recovering/Resolving]
  - Movement disorder [Not Recovered/Not Resolved]
  - Therapeutic product effect incomplete [Unknown]
  - Gait disturbance [Unknown]

NARRATIVE: CASE EVENT DATE: 20240101
